FAERS Safety Report 4999128-7 (Version None)
Quarter: 2006Q2

REPORT INFORMATION
  Report Type: 
  Country: None (occurrence: None)
  Receive Date: 20060509
  Receipt Date: 20060417
  Transmission Date: 20061013
  Serious: Yes (Hospitalization, Disabling, Other)
  Sender: FDA-Public Use
  Company Number: US200604002793

PATIENT
  Age: 82 Year
  Sex: Male

DRUGS (7)
  1. HUMULIN N [Suspect]
     Indication: DIABETES MELLITUS
     Dosage: SUBCUTANEOUS
     Route: 058
     Dates: start: 19960101
  2. HUMULIN N [Suspect]
     Indication: DIABETES MELLITUS
     Dates: start: 19960101
  3. HUMULIN N PEN                    (HUMULIN N PEN) PEN, DISPOSABLE [Concomitant]
  4. PLAVIX [Concomitant]
  5. ASA TABS (ACETYLSALICYLIC ACID) [Concomitant]
  6. METFORMIN [Concomitant]
  7. METOPROLOL SUCCINATE [Concomitant]

REACTIONS (9)
  - BLINDNESS [None]
  - CHOLELITHIASIS [None]
  - FACIAL BONES FRACTURE [None]
  - FALL [None]
  - HAND FRACTURE [None]
  - MACULAR DEGENERATION [None]
  - MALIGNANT MELANOMA [None]
  - PANCREATIC DUCT OBSTRUCTION [None]
  - RECTAL HAEMORRHAGE [None]
